FAERS Safety Report 25789776 (Version 1)
Quarter: 2025Q3

REPORT INFORMATION
  Report Type: Spontaneous
  Country: EU (occurrence: EU)
  Receive Date: 20250911
  Receipt Date: 20250911
  Transmission Date: 20251021
  Serious: Yes (Other)
  Sender: AUROBINDO
  Company Number: EU-AFSSAPS-NT2025000853

PATIENT
  Age: 90 Year
  Sex: Male
  Weight: 66.5 kg

DRUGS (2)
  1. DONEPEZIL [Suspect]
     Active Substance: DONEPEZIL
     Indication: Dementia with Lewy bodies
     Dosage: 10 MILLIGRAM, ONCE A DAY (10MG PER DAY (PRECEDED BY TAKING DONEPEZIL 5MG PER DAY FOR ONE MONTH))
     Route: 048
     Dates: start: 20250710, end: 20250731
  2. GALANTAMINE HYDROBROMIDE [Suspect]
     Active Substance: GALANTAMINE HYDROBROMIDE
     Indication: Dementia with Lewy bodies
     Route: 065

REACTIONS (1)
  - Hypersexuality [Recovering/Resolving]

NARRATIVE: CASE EVENT DATE: 20250720
